FAERS Safety Report 18112457 (Version 1)
Quarter: 2020Q3

REPORT INFORMATION
  Report Type: Spontaneous
  Country: US (occurrence: US)
  Receive Date: 20200805
  Receipt Date: 20200805
  Transmission Date: 20201103
  Serious: No
  Sender: FDA-Public Use
  Company Number: US-ASTRAZENECA-2020SE96106

PATIENT
  Age: 26296 Day
  Sex: Female
  Weight: 54.4 kg

DRUGS (1)
  1. SYMBICORT [Suspect]
     Active Substance: BUDESONIDE\FORMOTEROL FUMARATE DIHYDRATE
     Indication: CHRONIC OBSTRUCTIVE PULMONARY DISEASE
     Dosage: 160/4.5 MCG PUFF AS REQUIRED AS REQUIRED
     Route: 055
     Dates: start: 2019

REACTIONS (5)
  - Aphonia [Unknown]
  - Product use issue [Unknown]
  - Device defective [Unknown]
  - Intentional product misuse [Unknown]
  - Dysphonia [Unknown]

NARRATIVE: CASE EVENT DATE: 20200714
